FAERS Safety Report 6316685-9 (Version None)
Quarter: 2009Q3

REPORT INFORMATION
  Report Type: 
  Country: None (occurrence: None)
  Receive Date: 20090820
  Receipt Date: 20090813
  Transmission Date: 20100115
  Serious: Yes (Hospitalization)
  Sender: FDA-Public Use
  Company Number: JP-MERCK-0908USA02813

PATIENT
  Age: 62 Year
  Sex: Male

DRUGS (6)
  1. COZAAR [Suspect]
     Indication: HYPERTENSION
     Route: 048
     Dates: end: 20080801
  2. BEPRICOR [Concomitant]
     Indication: ARRHYTHMIA
     Route: 048
  3. WARFARIN POTASSIUM [Concomitant]
     Route: 048
  4. ARTIST [Concomitant]
     Route: 048
  5. SINGULAIR [Concomitant]
     Indication: ASTHMA
     Route: 048
     Dates: start: 20090701
  6. MEPTIN [Concomitant]
     Indication: ASTHMA
     Route: 048
     Dates: start: 20090701

REACTIONS (1)
  - INTERSTITIAL LUNG DISEASE [None]
